FAERS Safety Report 21864411 (Version 2)
Quarter: 2023Q1

REPORT INFORMATION
  Report Type: Report from Study
  Country: ES (occurrence: None)
  Receive Date: 20230116
  Receipt Date: 20230331
  Transmission Date: 20230417
  Serious: Yes (Hospitalization)
  Sender: FDA-Public Use
  Company Number: ES-ROCHE-3263676

PATIENT
  Age: 70 Year
  Sex: Male
  Weight: 82.9 kg

DRUGS (2)
  1. ATEZOLIZUMAB [Suspect]
     Active Substance: ATEZOLIZUMAB
     Indication: Bladder transitional cell carcinoma
     Dosage: MOST RECENT DOSE 28/DEC/2022
     Route: 041
     Dates: start: 20220824
  2. BCG VACCINE [Suspect]
     Active Substance: BCG VACCINE
     Indication: Bladder transitional cell carcinoma
     Dosage: MOST RECENT DOSE OF BCG ON 28/DEC/2022
     Route: 042
     Dates: start: 20220825

REACTIONS (1)
  - Immune-mediated encephalopathy [Recovered/Resolved]

NARRATIVE: CASE EVENT DATE: 20230109
